FAERS Safety Report 5531950-0 (Version None)
Quarter: 2007Q4

REPORT INFORMATION
  Report Type: 
  Country: None (occurrence: None)
  Receive Date: 20071203
  Receipt Date: 20071126
  Transmission Date: 20080405
  Serious: Yes (Other)
  Sender: FDA-Public Use
  Company Number: FR-ELI_LILLY_AND_COMPANY-FR200711006577

PATIENT
  Age: 64 Year
  Sex: Male

DRUGS (4)
  1. ALIMTA [Suspect]
     Dosage: UNK, UNKNOWN
     Route: 042
  2. FOLIC ACID [Concomitant]
     Indication: VITAMIN SUPPLEMENTATION
     Dosage: UNK, UNKNOWN
     Route: 065
  3. VITAMIN B-12 [Concomitant]
     Indication: VITAMIN SUPPLEMENTATION
     Dosage: UNK, UNKNOWN
     Route: 065
  4. CORTICOSTEROIDS [Concomitant]
     Indication: PROPHYLAXIS
     Dosage: UNK, UNKNOWN
     Route: 065

REACTIONS (5)
  - DERMATITIS ACNEIFORM [None]
  - EPIDERMOLYSIS [None]
  - RASH ERYTHEMATOUS [None]
  - RASH PUSTULAR [None]
  - TOXIC SKIN ERUPTION [None]
